FAERS Safety Report 24662354 (Version 6)
Quarter: 2025Q3

REPORT INFORMATION
  Report Type: Report from Study
  Country: US (occurrence: US)
  Receive Date: 20241125
  Receipt Date: 20250818
  Transmission Date: 20251021
  Serious: Yes (Hospitalization, Other)
  Sender: SANOFI AVENTIS
  Company Number: US-SA-2024SA342247

PATIENT
  Age: 35 Year
  Sex: Male
  Weight: 96.61 kg

DRUGS (15)
  1. AGALSIDASE BETA [Suspect]
     Active Substance: AGALSIDASE BETA
     Indication: Fabry^s disease
     Dosage: 100 MG, QOW
     Route: 042
     Dates: start: 202308
  2. EPINEPHRINE [Concomitant]
     Active Substance: EPINEPHRINE
  3. SODIUM CHLORIDE [Concomitant]
     Active Substance: SODIUM CHLORIDE
  4. SODIUM CHLORIDE [Concomitant]
     Active Substance: SODIUM CHLORIDE
  5. STERILE WATER [Concomitant]
     Active Substance: WATER
  6. DIPHENHYDRAMINE [Concomitant]
     Active Substance: DIPHENHYDRAMINE
  7. ROSUVASTATIN CALCIUM [Concomitant]
     Active Substance: ROSUVASTATIN CALCIUM
  8. ACETAMINOPHEN [Concomitant]
     Active Substance: ACETAMINOPHEN
     Indication: Premedication
  9. FENOFIBRATE [Concomitant]
     Active Substance: FENOFIBRATE
  10. FINASTERIDE [Concomitant]
     Active Substance: FINASTERIDE
  11. IBUPROFEN [Concomitant]
     Active Substance: IBUPROFEN
  12. SOLU-MEDROL [Concomitant]
     Active Substance: METHYLPREDNISOLONE SODIUM SUCCINATE
  13. BIOTIN [Concomitant]
     Active Substance: BIOTIN
  14. BROMFENAC [Concomitant]
     Active Substance: BROMFENAC
  15. PREDNISOLONE [Concomitant]
     Active Substance: PREDNISOLONE

REACTIONS (6)
  - Cataract [Unknown]
  - Depressed mood [Unknown]
  - Nausea [Recovered/Resolved]
  - Fabry^s disease [Unknown]
  - Condition aggravated [Unknown]
  - Intentional dose omission [Unknown]

NARRATIVE: CASE EVENT DATE: 20240101
